FAERS Safety Report 8815710 (Version 1)
Quarter: 2012Q4

REPORT INFORMATION
  Report Type: 
  Country: US (occurrence: US)
  Receive Date: 20120928
  Receipt Date: 20120928
  Transmission Date: 20130627
  Serious: Yes (Other)
  Sender: FDA-Public Use
  Company Number: US-BAYER-2012-100440

PATIENT
  Age: 64 Year
  Sex: Female
  Weight: 66 kg

DRUGS (5)
  1. RID 1-2-3 SYSTEM [Suspect]
     Dosage: UNK
     Route: 061
     Dates: start: 20120915, end: 20120916
  2. COZAAR [Concomitant]
  3. TAGAMET [Concomitant]
  4. VITAMINS [Concomitant]
  5. XANAX [Concomitant]
     Indication: INSOMNIA

REACTIONS (4)
  - Pollakiuria [Recovered/Resolved]
  - Application site erythema [Recovered/Resolved]
  - Application site erythema [Recovered/Resolved]
  - Application site irritation [Recovered/Resolved]
